FAERS Safety Report 7999387-2 (Version None)
Quarter: 2011Q4

REPORT INFORMATION
  Report Type: 
  Country: None (occurrence: None)
  Receive Date: 20111221
  Receipt Date: 20111209
  Transmission Date: 20120403
  Serious: Yes (Hospitalization, Other)
  Sender: FDA-Public Use
  Company Number: IE-MEDIMMUNE-MEDI-0014050

PATIENT
  Sex: Female
  Weight: 9.66 kg

DRUGS (7)
  1. LACTULOSE [Concomitant]
  2. OMEPRAZOLE SODIUM [Concomitant]
  3. RANITIDINE HYDROCHLORIDE [Concomitant]
  4. EPILM [Concomitant]
  5. CLONAZEPAM [Concomitant]
  6. CHLORAL HYDRATE [Concomitant]
  7. SYNAGIS [Suspect]
     Route: 058
     Dates: start: 20111029, end: 20111029

REACTIONS (5)
  - HIP DYSPLASIA [None]
  - EAR INFECTION [None]
  - CEREBRAL HAEMORRHAGE NEONATAL [None]
  - CEREBRAL PALSY [None]
  - GASTROOESOPHAGEAL REFLUX DISEASE [None]
